FAERS Safety Report 10669876 (Version 15)
Quarter: 2015Q4

REPORT INFORMATION
  Report Type: Spontaneous
  Country: DE (occurrence: DE)
  Receive Date: 20141222
  Receipt Date: 20151226
  Transmission Date: 20160304
  Serious: Yes (Hospitalization, Other)
  Sender: FDA-Public Use
  Company Number: DE-AMGEN-DEUSP2014098041

PATIENT
  Age: 76 Year
  Sex: Female
  Weight: 48 kg

DRUGS (10)
  1. MUSARIL [Concomitant]
     Active Substance: TETRAZEPAM
     Dosage: 50 MG, UNK
     Route: 048
     Dates: start: 20090914
  2. IODINE [Concomitant]
     Active Substance: IODINE
     Dosage: UNK UNK, QD
  3. KORODIN                            /00642501/ [Concomitant]
  4. LIQUIFILM [Concomitant]
  5. MYDOCALM                           /00293002/ [Concomitant]
  6. CALCIUM + MAGNESIUM [Concomitant]
     Dosage: UNK UNK, QD
     Route: 048
  7. NOVAMINSULFON [Concomitant]
     Active Substance: METAMIZOLE
     Dosage: UNK UNK, AS NECESSARY
  8. PROLIA [Suspect]
     Active Substance: DENOSUMAB
     Indication: OSTEOPOROSIS
     Dosage: 60 MG, Q6MO
     Route: 065
     Dates: start: 20131028
  9. TRANXILIUM [Concomitant]
     Active Substance: CLORAZEPATE DIPOTASSIUM
     Dosage: 0-0-3/4
     Route: 048
  10. LASEA [Concomitant]

REACTIONS (98)
  - Peripheral swelling [Not Recovered/Not Resolved]
  - Alopecia [Not Recovered/Not Resolved]
  - Paronychia [Unknown]
  - Loose tooth [Unknown]
  - Hypophagia [Unknown]
  - Cognitive disorder [Unknown]
  - Eye swelling [Not Recovered/Not Resolved]
  - Malaise [Not Recovered/Not Resolved]
  - Pyrexia [Not Recovered/Not Resolved]
  - Ocular hyperaemia [Not Recovered/Not Resolved]
  - Skin reaction [Not Recovered/Not Resolved]
  - Gingival pain [Not Recovered/Not Resolved]
  - General physical condition abnormal [Not Recovered/Not Resolved]
  - Wound haemorrhage [Unknown]
  - Skin papilloma [Unknown]
  - Tooth fracture [Unknown]
  - Dysstasia [Unknown]
  - Pain in extremity [Not Recovered/Not Resolved]
  - Cataract [Not Recovered/Not Resolved]
  - Conjunctivitis [Recovering/Resolving]
  - Haematoma [Unknown]
  - Temperature intolerance [Unknown]
  - Eczema [Unknown]
  - Paralysis [Not Recovered/Not Resolved]
  - Osteonecrosis of jaw [Not Recovered/Not Resolved]
  - Swelling face [Not Recovered/Not Resolved]
  - Tooth loss [Not Recovered/Not Resolved]
  - Dysgraphia [Not Recovered/Not Resolved]
  - Impaired self-care [Not Recovered/Not Resolved]
  - Frequent bowel movements [Not Recovered/Not Resolved]
  - Pain [Not Recovered/Not Resolved]
  - Purulent discharge [Unknown]
  - Stress urinary incontinence [Unknown]
  - Mobility decreased [Not Recovered/Not Resolved]
  - Limb discomfort [Unknown]
  - Skin haemorrhage [Unknown]
  - Haematoma [Not Recovered/Not Resolved]
  - Hypoaesthesia [Not Recovered/Not Resolved]
  - Glossitis [Not Recovered/Not Resolved]
  - Tremor [Not Recovered/Not Resolved]
  - Skin discolouration [Unknown]
  - Underweight [Unknown]
  - Nocturia [Unknown]
  - Fatigue [Not Recovered/Not Resolved]
  - Agitation [Unknown]
  - Spinal osteoarthritis [Unknown]
  - Cystitis [Unknown]
  - Skin ulcer [Not Recovered/Not Resolved]
  - Noninfective gingivitis [Not Recovered/Not Resolved]
  - Visual impairment [Not Recovered/Not Resolved]
  - Bladder disorder [Not Recovered/Not Resolved]
  - Wound [Not Recovered/Not Resolved]
  - Burning sensation [Not Recovered/Not Resolved]
  - Arthropathy [Not Recovered/Not Resolved]
  - Pharyngitis [Not Recovered/Not Resolved]
  - Arthralgia [Unknown]
  - Neck pain [Unknown]
  - Burning sensation [Unknown]
  - Chest pain [Unknown]
  - Skin injury [Unknown]
  - Wound secretion [Unknown]
  - Gastrooesophageal reflux disease [Unknown]
  - Lip swelling [Not Recovered/Not Resolved]
  - Vulval cancer [Unknown]
  - Basal cell carcinoma [Unknown]
  - Abdominal pain [Not Recovered/Not Resolved]
  - Bone pain [Not Recovered/Not Resolved]
  - Feeling abnormal [Unknown]
  - Nervousness [Unknown]
  - Foot deformity [Unknown]
  - Back pain [Unknown]
  - Tongue blistering [Not Recovered/Not Resolved]
  - Toothache [Not Recovered/Not Resolved]
  - Sleep disorder due to general medical condition, insomnia type [Not Recovered/Not Resolved]
  - Contusion [Unknown]
  - Hyperkeratosis [Unknown]
  - Depressed mood [Not Recovered/Not Resolved]
  - Pigmentation disorder [Unknown]
  - Goitre [Unknown]
  - Impaired healing [Not Recovered/Not Resolved]
  - Social avoidant behaviour [Not Recovered/Not Resolved]
  - Headache [Not Recovered/Not Resolved]
  - Chills [Not Recovered/Not Resolved]
  - Hyperhidrosis [Not Recovered/Not Resolved]
  - Tongue haemorrhage [Not Recovered/Not Resolved]
  - Pulpitis dental [Not Recovered/Not Resolved]
  - Osteitis [Not Recovered/Not Resolved]
  - Gait disturbance [Not Recovered/Not Resolved]
  - Injection site inflammation [Unknown]
  - Asthenia [Not Recovered/Not Resolved]
  - Pain in jaw [Unknown]
  - Dysthymic disorder [Unknown]
  - Fall [Unknown]
  - Osteoarthritis [Unknown]
  - Tremor [Unknown]
  - Dizziness [Unknown]
  - Rash generalised [Unknown]
  - Constipation [Unknown]

NARRATIVE: CASE EVENT DATE: 20131028
